FAERS Safety Report 10053362 (Version 2)
Quarter: 2014Q2

REPORT INFORMATION
  Report Type: Report from Study
  Country: US (occurrence: US)
  Receive Date: 20140402
  Receipt Date: 20140402
  Transmission Date: 20141212
  Serious: Yes (Hospitalization, Other)
  Sender: FDA-Public Use
  Company Number: US-JNJFOC-20140201809

PATIENT
  Age: 65 Year
  Sex: Male

DRUGS (5)
  1. STELARA [Suspect]
     Indication: PSORIASIS
     Route: 058
     Dates: start: 20130815
  2. STELARA [Suspect]
     Indication: PSORIASIS
     Route: 058
     Dates: start: 20130801, end: 2013
  3. BENICAR [Concomitant]
     Indication: HYPERTENSION
     Route: 065
  4. FOLIC ACID [Concomitant]
     Indication: PSORIASIS
     Route: 065
     Dates: start: 20090516
  5. PRAVASTATIN [Concomitant]
     Indication: BLOOD CHOLESTEROL INCREASED
     Route: 065

REACTIONS (6)
  - Haematoma [Unknown]
  - Cellulitis [Unknown]
  - Laceration [Unknown]
  - Soft tissue injury [Unknown]
  - Acute myocardial infarction [Recovering/Resolving]
  - Accident [Unknown]
